FAERS Safety Report 11775787 (Version 1)
Quarter: 2015Q4

REPORT INFORMATION
  Report Type: Spontaneous
  Country: US (occurrence: US)
  Receive Date: 20151125
  Receipt Date: 20151125
  Transmission Date: 20160304
  Serious: No
  Sender: FDA-Public Use
  Company Number: US-JNJFOC-20151016697

PATIENT
  Age: 28 Year
  Sex: Male
  Weight: 90.72 kg

DRUGS (2)
  1. INVEGA [Suspect]
     Active Substance: PALIPERIDONE
     Indication: HYPOMANIA
     Route: 048
     Dates: start: 201510
  2. WELLBUTRIN [Concomitant]
     Active Substance: BUPROPION HYDROCHLORIDE
     Indication: ASPERGER^S DISORDER

REACTIONS (8)
  - Fatigue [Not Recovered/Not Resolved]
  - Product coating issue [Unknown]
  - Psychomotor hyperactivity [Not Recovered/Not Resolved]
  - Feeling of relaxation [Not Recovered/Not Resolved]
  - Insomnia [Not Recovered/Not Resolved]
  - Off label use [Unknown]
  - Product used for unknown indication [Unknown]
  - Middle insomnia [Not Recovered/Not Resolved]

NARRATIVE: CASE EVENT DATE: 201510
